FAERS Safety Report 8150360-3 (Version None)
Quarter: 2012Q1

REPORT INFORMATION
  Report Type: 
  Country: None (occurrence: None)
  Receive Date: 20120220
  Receipt Date: 20120209
  Transmission Date: 20120608
  Serious: Yes (Other)
  Sender: FDA-Public Use
  Company Number: GB-PFIZER INC-2012040760

PATIENT
  Age: 83 Year
  Sex: Male

DRUGS (8)
  1. SIMVASTATIN [Concomitant]
  2. AMIODARONE HCL [Suspect]
     Dosage: 200 MG, 2X/DAY
     Route: 048
  3. TOLTERODINE [Concomitant]
  4. AMIODARONE HCL [Suspect]
     Dosage: 100 MG, 2X/DAY
     Route: 048
  5. ALLOPURINOL [Concomitant]
  6. AMIODARONE HCL [Suspect]
     Dosage: LOADING DOSE
     Route: 042
     Dates: start: 20120120
  7. ACETYLSALICYLIC ACID [Concomitant]
  8. PERINDOPRIL [Concomitant]

REACTIONS (3)
  - PSYCHOTIC DISORDER [None]
  - DELUSION [None]
  - MEMORY IMPAIRMENT [None]
